FAERS Safety Report 7655437-4 (Version None)
Quarter: 2011Q3

REPORT INFORMATION
  Report Type: 
  Country: None (occurrence: None)
  Receive Date: 20110804
  Receipt Date: 20110726
  Transmission Date: 20111222
  Serious: Yes (Other)
  Sender: FDA-Public Use
  Company Number: US-JNJFOC-20110800440

PATIENT
  Age: 2 Year
  Sex: Female
  Weight: 14.52 kg

DRUGS (1)
  1. DESITIN ORIGINAL OINTMENT [Suspect]
     Indication: DERMATITIS DIAPER
     Dosage: EVENLY OVER DIAPER RASH WITH EVERY DIAPER CHANGE FOR ABOUT A WEEK.
     Route: 061
     Dates: end: 20110726

REACTIONS (3)
  - ERYTHEMA [None]
  - RASH [None]
  - BLOOD BLISTER [None]
